FAERS Safety Report 18159986 (Version 1)
Quarter: 2020Q3

REPORT INFORMATION
  Report Type: Spontaneous
  Country: RO (occurrence: RO)
  Receive Date: 20200817
  Receipt Date: 20200817
  Transmission Date: 20201103
  Serious: Yes (Other)
  Sender: FDA-Public Use
  Company Number: RO-SAMSUNG BIOEPIS-SB-2020-25664

PATIENT
  Age: 64 Year
  Sex: Female

DRUGS (2)
  1. BENEPALI [Suspect]
     Active Substance: ETANERCEPT
     Indication: RHEUMATOID ARTHRITIS
     Dosage: UNKNOWN
     Route: 065
     Dates: start: 201804
  2. XELJANZ [Suspect]
     Active Substance: TOFACITINIB CITRATE
     Indication: RHEUMATOID ARTHRITIS
     Route: 065
     Dates: start: 202002

REACTIONS (8)
  - Arthralgia [Unknown]
  - Arthritis [Unknown]
  - Urinary tract infection [Unknown]
  - Vasculitis [Unknown]
  - Therapy non-responder [Unknown]
  - Osteonecrosis [Unknown]
  - Swelling [Unknown]
  - C-reactive protein increased [Unknown]

NARRATIVE: CASE EVENT DATE: 201912
